FAERS Safety Report 15981021 (Version 1)
Quarter: 2019Q1

REPORT INFORMATION
  Report Type: Spontaneous
  Country: US (occurrence: US)
  Receive Date: 20190218
  Receipt Date: 20190218
  Transmission Date: 20190418
  Serious: No
  Sender: FDA-Public Use
  Company Number: None

PATIENT
  Sex: Male

DRUGS (2)
  1. LANTUS [Suspect]
     Active Substance: INSULIN GLARGINE
  2. GLIPIZIDE. [Suspect]
     Active Substance: GLIPIZIDE

REACTIONS (3)
  - Fatigue [None]
  - Treatment failure [None]
  - Anxiety [None]
